FAERS Safety Report 8836540 (Version 2)
Quarter: 2012Q4

REPORT INFORMATION
  Report Type: Spontaneous
  Country: MX (occurrence: None)
  Receive Date: 20121001
  Receipt Date: 20121001
  Transmission Date: 20130627
  Serious: Yes (Death)
  Sender: FDA-Public Use
  Company Number: 2012MZ000369

PATIENT
  Age: 2 Year
  Sex: Male

DRUGS (8)
  1. XEOMIN [Suspect]
     Indication: ARM SPASTICITY
     Route: 030
     Dates: start: 20120727, end: 20120727
  2. XEOMIN [Suspect]
     Indication: LEG SPASTICITY
     Route: 030
     Dates: start: 20120727, end: 20120727
  3. XEOMIN [Suspect]
     Indication: ARM SPASTICITY
     Route: 030
  4. XEOMIN [Suspect]
     Indication: LEG SPASTICITY
     Route: 030
  5. XEOMIN [Suspect]
     Indication: ARM SPASTICITY
     Route: 030
  6. XEOMIN [Suspect]
     Indication: LEG SPASTICITY
     Route: 030
  7. VALPROIC ACID [Concomitant]
  8. RISPERIDONE [Concomitant]

REACTIONS (9)
  - Pallor [None]
  - Cardiac arrest [None]
  - Respiratory failure [None]
  - Endotracheal intubation complication [None]
  - Cyanosis [None]
  - Shock [None]
  - Epilepsy [None]
  - Laryngeal obstruction [None]
  - Apnoea [None]
